FAERS Safety Report 24240548 (Version 1)
Quarter: 2024Q3

REPORT INFORMATION
  Report Type: Spontaneous
  Country: MX (occurrence: MX)
  Receive Date: 20240822
  Receipt Date: 20240822
  Transmission Date: 20241016
  Serious: Yes (Death)
  Sender: BOEHRINGER INGELHEIM
  Company Number: MX-BoehringerIngelheim-2024-BI-043086

PATIENT
  Age: 82 Year
  Sex: Male

DRUGS (1)
  1. OFEV [Suspect]
     Active Substance: NINTEDANIB
     Indication: Interstitial lung disease
     Route: 048
     Dates: start: 20240725, end: 20240807

REACTIONS (3)
  - Disease complication [Fatal]
  - Oxygen saturation decreased [Recovered/Resolved]
  - Constipation [Recovering/Resolving]

NARRATIVE: CASE EVENT DATE: 20240726
